FAERS Safety Report 23049402 (Version 1)
Quarter: 2023Q4

REPORT INFORMATION
  Report Type: Report from Study
  Country: US (occurrence: US)
  Receive Date: 20231010
  Receipt Date: 20231010
  Transmission Date: 20240110
  Serious: Yes (Other)
  Sender: FDA-Public Use
  Company Number: US-MYLANLABS-2023M1106097

PATIENT
  Sex: Male
  Weight: 59.87 kg

DRUGS (1)
  1. YUPELRI [Suspect]
     Active Substance: REVEFENACIN
     Indication: Chronic obstructive pulmonary disease
     Dosage: 175 MCG/3 ML, QD
     Route: 055
     Dates: start: 20211020, end: 20230721

REACTIONS (1)
  - Prostate cancer [Unknown]
